FAERS Safety Report 6878170-5 (Version None)
Quarter: 2010Q2

REPORT INFORMATION
  Report Type: 
  Country: None (occurrence: None)
  Receive Date: 20100623
  Receipt Date: 20080606
  Transmission Date: 20101027
  Serious: No
  Sender: FDA-Public Use
  Company Number: 2008-00091

PATIENT
  Age: 55 Year
  Sex: Female
  Weight: 49.4421 kg

DRUGS (2)
  1. ZICAM COLD REMEDY GEL SWABS [Suspect]
     Dosage: 2-3X/DAY X 6 DAYS
     Dates: start: 20080518, end: 20080524
  2. FOSAMAX [Concomitant]

REACTIONS (2)
  - AGEUSIA [None]
  - ANOSMIA [None]
